FAERS Safety Report 11645554 (Version 1)
Quarter: 2015Q4

REPORT INFORMATION
  Report Type: Spontaneous
  Country: US (occurrence: US)
  Receive Date: 20151020
  Receipt Date: 20151020
  Transmission Date: 20160304
  Serious: Yes (Other)
  Sender: FDA-Public Use
  Company Number: US-SMITH AND NEPHEW, INC-2015SMT00406

PATIENT
  Age: 82 Year
  Sex: Female
  Weight: 66.21 kg

DRUGS (20)
  1. CALCIUM + D [Concomitant]
     Active Substance: CALCIUM\VITAMIN D
     Dosage: 1200 MG, 1X/DAY
  2. SUDAFED [Concomitant]
     Active Substance: PSEUDOEPHEDRINE HYDROCHLORIDE
     Dosage: 10 MG, 1X/DAY
     Route: 031
  3. LUMIGAN [Concomitant]
     Active Substance: BIMATOPROST
     Dosage: 1 DOSAGE UNITS, UNK
     Route: 047
  4. PREDNISONE. [Concomitant]
     Active Substance: PREDNISONE
     Dosage: 6 MG, 1X/DAY
  5. LUTEIN + BILBERRY [Concomitant]
     Dosage: 20 MG, UNK
  6. FERROUS GLUCONATE [Concomitant]
     Active Substance: FERROUS GLUCONATE
     Dosage: 300 MG, UNK
  7. SPIRIVA [Concomitant]
     Active Substance: TIOTROPIUM BROMIDE MONOHYDRATE
     Dosage: 18 ?G, 1X/DAY
  8. LUCENTIS [Concomitant]
     Active Substance: RANIBIZUMAB
     Route: 031
  9. ST JOHN^S WORT [Concomitant]
     Active Substance: ST. JOHN^S WORT
     Dosage: 900 MG, 1X/DAY
  10. FLUTICASONE [Concomitant]
     Active Substance: FLUTICASONE\FLUTICASONE PROPIONATE
     Dosage: 1 DOSAGE UNITS, 1X/DAY
     Route: 045
  11. POTASSIUM [Concomitant]
     Active Substance: POTASSIUM
     Dosage: 96 MG, UNK
  12. MELATONIN [Concomitant]
     Active Substance: MELATONIN
     Dosage: 3 MG, 1X/DAY
  13. COLLAGENASE SANTYL [Suspect]
     Active Substance: COLLAGENASE CLOSTRIDIUM HISTOLYTICUM
     Indication: SKIN ULCER
     Dosage: UNK UNK, 1X/DAY
     Dates: start: 201508
  14. DOXYLAMINE SUCCINATE. [Concomitant]
     Active Substance: DOXYLAMINE SUCCINATE
     Dosage: 25 MG, AS NEEDED
  15. CLOPIDOGREL [Concomitant]
     Active Substance: CLOPIDOGREL BISULFATE
     Dosage: 75 MG, EVERY 48 HOURS
  16. MULTIVITAMIN [Concomitant]
     Active Substance: VITAMINS
  17. VITAMIN B12 [Concomitant]
     Active Substance: CYANOCOBALAMIN
  18. ISOSORBIDE MONONITRATE. [Concomitant]
     Active Substance: ISOSORBIDE MONONITRATE
     Dosage: 30 MG, 1X/DAY
  19. FUROSEMIDE. [Concomitant]
     Active Substance: FUROSEMIDE
     Dosage: 25 MG, 1X/DAY
  20. OXYGEN. [Concomitant]
     Active Substance: OXYGEN
     Dosage: UNK, CONTINUOUS

REACTIONS (2)
  - Procedural pain [Recovering/Resolving]
  - Application site cellulitis [Unknown]

NARRATIVE: CASE EVENT DATE: 201508
